FAERS Safety Report 5932384-7 (Version None)
Quarter: 2008Q4

REPORT INFORMATION
  Report Type: 
  Country: None (occurrence: None)
  Receive Date: 20081028
  Receipt Date: 20081021
  Transmission Date: 20090506
  Serious: Yes (Hospitalization)
  Sender: FDA-Public Use
  Company Number: US-JNJFOC-20081004921

PATIENT
  Age: 31 Year
  Sex: Female

DRUGS (1)
  1. ULTRAM [Suspect]
     Indication: BACK PAIN
     Route: 048

REACTIONS (4)
  - ELECTROCARDIOGRAM QT PROLONGED [None]
  - OVERDOSE [None]
  - PALPITATIONS [None]
  - TACHYCARDIA [None]
